FAERS Safety Report 13819025 (Version 2)
Quarter: 2018Q1

REPORT INFORMATION
  Report Type: Report from Study
  Country: US (occurrence: US)
  Receive Date: 20170731
  Receipt Date: 20180201
  Transmission Date: 20180508
  Serious: No
  Sender: FDA-Public Use
  Company Number: US-EXELIXIS-CABO-17008415

PATIENT
  Sex: Female

DRUGS (12)
  1. LEVOTHYROXINE. [Concomitant]
     Active Substance: LEVOTHYROXINE
  2. CABOMETYX [Suspect]
     Active Substance: CABOZANTINIB S-MALATE
     Indication: RENAL CANCER
     Dosage: 40 MG, QD
     Route: 048
     Dates: start: 20160630, end: 2016
  3. PANTOPRAZOLE [Concomitant]
     Active Substance: PANTOPRAZOLE
  4. HYDROMORPHONE [Concomitant]
     Active Substance: HYDROMORPHONE
  5. CALCIUM [Concomitant]
     Active Substance: CALCIUM
  6. HYDROCODONE BITARTRATE AND ACETAMINOPHEN [Concomitant]
     Active Substance: ACETAMINOPHEN\HYDROCODONE BITARTRATE
  7. PROBIOTIC [Concomitant]
     Active Substance: PROBIOTICS NOS
  8. LEVAQUIN [Concomitant]
     Active Substance: LEVOFLOXACIN
  9. FENTANYL. [Concomitant]
     Active Substance: FENTANYL
  10. CABOMETYX [Suspect]
     Active Substance: CABOZANTINIB S-MALATE
     Dosage: 20 MG, QD
     Route: 048
     Dates: start: 20160924
  11. IBUPROFEN. [Concomitant]
     Active Substance: IBUPROFEN
  12. ZINC. [Concomitant]
     Active Substance: ZINC

REACTIONS (1)
  - Condition aggravated [Unknown]
